FAERS Safety Report 13564721 (Version 1)
Quarter: 2017Q2

REPORT INFORMATION
  Report Type: Report from Study
  Country: PH (occurrence: PH)
  Receive Date: 20170519
  Receipt Date: 20170519
  Transmission Date: 20170830
  Serious: Yes (Death, Other)
  Sender: FDA-Public Use
  Company Number: PHHY2017PH069469

PATIENT
  Age: 60 Year
  Sex: Male

DRUGS (1)
  1. GLIVEC [Suspect]
     Active Substance: IMATINIB MESYLATE
     Indication: CHRONIC MYELOID LEUKAEMIA
     Dosage: 400 MG, QD
     Route: 065
     Dates: start: 200708

REACTIONS (13)
  - Malignant neoplasm progression [Unknown]
  - Decreased appetite [Unknown]
  - Lymphocyte count decreased [Unknown]
  - White blood cell count increased [Unknown]
  - Death [Fatal]
  - Haemoglobin decreased [Unknown]
  - Constipation [Unknown]
  - Pulmonary tuberculosis [Unknown]
  - Neutrophil count increased [Unknown]
  - Monocyte count increased [Unknown]
  - Weight decreased [Unknown]
  - Chronic myeloid leukaemia [Unknown]
  - Haematocrit decreased [Unknown]

NARRATIVE: CASE EVENT DATE: 20170407
